FAERS Safety Report 8013080-1 (Version None)
Quarter: 2011Q4

REPORT INFORMATION
  Report Type: 
  Country: None (occurrence: None)
  Receive Date: 20111229
  Receipt Date: 20111221
  Transmission Date: 20120403
  Serious: Yes (Death)
  Sender: FDA-Public Use
  Company Number: US-CELGENEUS-163-21880-11123357

PATIENT
  Sex: Female
  Weight: 45.4 kg

DRUGS (3)
  1. GLEEVEC [Concomitant]
     Dosage: 400 MILLIGRAM
     Route: 065
  2. REVLIMID [Suspect]
  3. REVLIMID [Suspect]
     Dosage: 10 MILLIGRAM
     Route: 048
     Dates: start: 20061013, end: 20070702

REACTIONS (1)
  - DEATH [None]
